FAERS Safety Report 10729312 (Version 1)
Quarter: 2015Q1

REPORT INFORMATION
  Report Type: Spontaneous
  Country: US (occurrence: None)
  Receive Date: 20150120
  Receipt Date: 20150120
  Transmission Date: 20150721
  Serious: Yes (Other)
  Sender: FDA-Public Use
  Company Number: None

PATIENT
  Age: 52 Year
  Sex: Female
  Weight: 68.95 kg

DRUGS (1)
  1. PROAIR HFA [Suspect]
     Active Substance: ALBUTEROL SULFATE
     Indication: BRONCHITIS
     Dosage: 2 PUFFS EVERY 4 HOURS
     Dates: start: 20150113, end: 20150118

REACTIONS (3)
  - Myalgia [None]
  - Gait disturbance [None]
  - Musculoskeletal disorder [None]

NARRATIVE: CASE EVENT DATE: 20150117
